FAERS Safety Report 10043447 (Version 3)
Quarter: 2014Q2

REPORT INFORMATION
  Report Type: Spontaneous
  Country: US (occurrence: US)
  Receive Date: 20140328
  Receipt Date: 20140509
  Transmission Date: 20141212
  Serious: No
  Sender: FDA-Public Use
  Company Number: US-PFIZER INC-2014084015

PATIENT
  Age: 55 Year
  Sex: Female

DRUGS (3)
  1. NEURONTIN [Suspect]
     Indication: SENSITISATION
     Dosage: 600 MG, 4X/DAY (1 4 TIMES DAILY)
  2. BACLOFEN [Concomitant]
     Dosage: UNK
  3. RIZATRIPTAN [Concomitant]
     Dosage: UNK

REACTIONS (3)
  - Quality of life decreased [Unknown]
  - Muscle spasms [Unknown]
  - Pain [Unknown]
